FAERS Safety Report 8963113 (Version 1)
Quarter: 2012Q4

REPORT INFORMATION
  Report Type: 
  Country: US (occurrence: US)
  Receive Date: 20121214
  Receipt Date: 20121214
  Transmission Date: 20130627
  Serious: Yes (Life-Threatening, Hospitalization, Other)
  Sender: FDA-Public Use
  Company Number: US-ELI_LILLY_AND_COMPANY-US201212002717

PATIENT
  Age: 47 None
  Sex: Female
  Weight: 73.92 kg

DRUGS (8)
  1. HUMULIN REGULAR [Suspect]
     Indication: DIABETES MELLITUS
     Dosage: UNK
     Dates: start: 1981, end: 1999
  2. HUMULIN NPH [Suspect]
     Indication: DIABETES MELLITUS
     Dosage: UNK
     Dates: start: 1981, end: 1999
  3. HUMALOG LISPRO [Suspect]
     Indication: DIABETES MELLITUS
     Dosage: UNK
     Dates: start: 1999
  4. HUMALOG LISPRO [Suspect]
     Dosage: UNK, prn
     Route: 058
     Dates: start: 2006
  5. GLUCAGON [Suspect]
     Indication: BLOOD GLUCOSE DECREASED
     Dosage: UNK, prn
  6. LANTUS [Concomitant]
     Indication: DIABETES MELLITUS
     Dosage: UNK
     Dates: start: 1999
  7. ULTRALENTE INSULIN [Concomitant]
     Indication: DIABETES MELLITUS
     Dosage: UNK
     Dates: start: 2003
  8. NOVOLOG [Concomitant]
     Indication: DIABETES MELLITUS
     Dosage: UNK
     Dates: start: 2008

REACTIONS (26)
  - Altered state of consciousness [Recovered/Resolved]
  - Arrhythmia [Unknown]
  - Electrolyte imbalance [Unknown]
  - Blood glucose decreased [Unknown]
  - Convulsion [Recovered/Resolved]
  - Transient ischaemic attack [Unknown]
  - Ovarian cyst [Unknown]
  - Ovarian cyst [Unknown]
  - Blood glucose decreased [Unknown]
  - Blood glucose decreased [Unknown]
  - Exposure during pregnancy [Recovered/Resolved]
  - Blood glucose abnormal [Unknown]
  - Malaise [Unknown]
  - Hormone level abnormal [Unknown]
  - Impaired gastric emptying [Not Recovered/Not Resolved]
  - Hot flush [Not Recovered/Not Resolved]
  - Chest pain [Unknown]
  - Blood magnesium decreased [Unknown]
  - Motor dysfunction [Unknown]
  - Pain [Unknown]
  - Unevaluable event [Recovered/Resolved]
  - Vomiting [Recovered/Resolved]
  - Unevaluable event [Unknown]
  - Vaginal haemorrhage [Recovered/Resolved]
  - Blood iron decreased [Unknown]
  - Blood glucose increased [Unknown]
